FAERS Safety Report 9152225 (Version 1)
Quarter: 2013Q1

REPORT INFORMATION
  Report Type: Spontaneous
  Country: CA (occurrence: CA)
  Receive Date: 20130308
  Receipt Date: 20130308
  Transmission Date: 20140127
  Serious: Yes (Death)
  Sender: FDA-Public Use
  Company Number: CA-TEVA-390551USA

PATIENT
  Age: 27 Year
  Sex: Female
  Weight: 60 kg

DRUGS (10)
  1. AVIANE 28 DAY [Suspect]
     Route: 065
  2. CHAMPIX [Interacting]
     Route: 065
  3. CITALOPRAM [Interacting]
     Route: 065
  4. FENTANYL [Interacting]
     Route: 065
  5. FLOVENT [Interacting]
     Route: 065
  6. NAPROXEN [Interacting]
     Route: 065
  7. QUETIAPINE [Interacting]
     Route: 065
  8. VALACYCLOVIR [Interacting]
     Route: 065
  9. ZOPICLONE [Suspect]
     Route: 065
  10. ALCOHOL [Interacting]

REACTIONS (4)
  - Alcohol interaction [Fatal]
  - Alcohol poisoning [Fatal]
  - Toxicity to various agents [Fatal]
  - Unresponsive to stimuli [Fatal]
